FAERS Safety Report 12439955 (Version 5)
Quarter: 2016Q3

REPORT INFORMATION
  Report Type: Spontaneous
  Country: JP (occurrence: JP)
  Receive Date: 20160606
  Receipt Date: 20160803
  Transmission Date: 20161109
  Serious: Yes (Other)
  Sender: FDA-Public Use
  Company Number: PHJP2016JP014749

PATIENT
  Sex: Male

DRUGS (3)
  1. EXELON PATCH [Suspect]
     Active Substance: RIVASTIGMINE
     Indication: DEMENTIA ALZHEIMER^S TYPE
     Dosage: PATCH5(CM2), QD
     Route: 062
     Dates: start: 201603
  2. EXELON PATCH [Suspect]
     Active Substance: RIVASTIGMINE
     Dosage: PATCH10(CM2), QD
     Route: 062
     Dates: end: 20160524
  3. WARFARIN [Concomitant]
     Active Substance: WARFARIN
     Indication: MYOCARDIAL INFARCTION
     Dosage: 1.5 MG, QD
     Route: 065

REACTIONS (12)
  - Pleural effusion [Recovered/Resolved]
  - Cardiac failure chronic [Recovered/Resolved]
  - Dysphagia [Recovered/Resolved]
  - Cardiomyopathy [Recovered/Resolved]
  - Oxygen saturation decreased [Recovered/Resolved]
  - Depressed level of consciousness [Recovered/Resolved]
  - Oedema peripheral [Recovered/Resolved]
  - Arrhythmia [Unknown]
  - Eating disorder [Unknown]
  - Somnolence [Recovered/Resolved]
  - Myocardial necrosis marker increased [Unknown]
  - Dementia Alzheimer^s type [Unknown]
